FAERS Safety Report 8808124 (Version 5)
Quarter: 2015Q3

REPORT INFORMATION
  Report Type: Report from Study
  Country: US (occurrence: US)
  Receive Date: 20120925
  Receipt Date: 20150714
  Transmission Date: 20151125
  Serious: Yes (Death, Other)
  Sender: FDA-Public Use
  Company Number: US-ROCHE-1126258

PATIENT
  Sex: Female
  Weight: 71.36 kg

DRUGS (114)
  1. AVASTIN [Suspect]
     Active Substance: BEVACIZUMAB
     Indication: BREAST CANCER FEMALE
     Dosage: INDIVIDUAL DOSE 350MG
     Route: 042
     Dates: start: 20050426
  2. AVASTIN [Suspect]
     Active Substance: BEVACIZUMAB
     Route: 042
     Dates: start: 20050802
  3. NEULASTA [Suspect]
     Active Substance: PEGFILGRASTIM
     Route: 065
     Dates: start: 20050608
  4. ABRAXANE [Suspect]
     Active Substance: PACLITAXEL
     Route: 042
     Dates: start: 20050920
  5. ABRAXANE [Suspect]
     Active Substance: PACLITAXEL
     Route: 042
     Dates: start: 20050927
  6. ABRAXANE [Suspect]
     Active Substance: PACLITAXEL
     Dosage: INDIVIDUAL DOSE 176 MG
     Route: 042
     Dates: start: 20051018
  7. DECADRON [Concomitant]
     Active Substance: DEXAMETHASONE
     Route: 042
     Dates: start: 20050726
  8. BENADRYL [Concomitant]
     Active Substance: DIPHENHYDRAMINE HYDROCHLORIDE
     Route: 042
     Dates: start: 20050407
  9. BENADRYL [Concomitant]
     Active Substance: DIPHENHYDRAMINE HYDROCHLORIDE
     Route: 042
     Dates: start: 20051108
  10. ARANESP [Concomitant]
     Active Substance: DARBEPOETIN ALFA
     Route: 042
     Dates: start: 20050920
  11. ARANESP [Concomitant]
     Active Substance: DARBEPOETIN ALFA
     Route: 042
     Dates: start: 20050506
  12. LEVAQUIN [Concomitant]
     Active Substance: LEVOFLOXACIN
  13. LOZOL [Concomitant]
     Active Substance: INDAPAMIDE
     Route: 048
  14. FIBERCON [Concomitant]
     Active Substance: CALCIUM POLYCARBOPHIL
  15. AVASTIN [Suspect]
     Active Substance: BEVACIZUMAB
     Route: 042
     Dates: start: 20050604
  16. ABRAXANE [Suspect]
     Active Substance: PACLITAXEL
     Dosage: INDIVIDUAL DOSE 176 MG
     Route: 042
     Dates: start: 20051108
  17. BENADRYL [Concomitant]
     Active Substance: DIPHENHYDRAMINE HYDROCHLORIDE
     Route: 042
     Dates: start: 20050927
  18. BENADRYL [Concomitant]
     Active Substance: DIPHENHYDRAMINE HYDROCHLORIDE
     Route: 042
     Dates: start: 20050721
  19. ARANESP [Concomitant]
     Active Substance: DARBEPOETIN ALFA
     Route: 042
     Dates: start: 20050407
  20. ARANESP [Concomitant]
     Active Substance: DARBEPOETIN ALFA
     Route: 042
     Dates: start: 20050802
  21. ARANESP [Concomitant]
     Active Substance: DARBEPOETIN ALFA
     Route: 042
     Dates: start: 20050816
  22. PREVACID [Concomitant]
     Active Substance: LANSOPRAZOLE
     Route: 065
  23. AVASTIN [Suspect]
     Active Substance: BEVACIZUMAB
     Route: 042
     Dates: start: 20050719
  24. AVASTIN [Suspect]
     Active Substance: BEVACIZUMAB
     Dosage: INDIVIDUAL DOSE 350MG
     Route: 042
     Dates: start: 20050524
  25. AVASTIN [Suspect]
     Active Substance: BEVACIZUMAB
     Route: 042
     Dates: start: 20050407
  26. AVASTIN [Suspect]
     Active Substance: BEVACIZUMAB
     Route: 042
     Dates: start: 20050816
  27. AVASTIN [Suspect]
     Active Substance: BEVACIZUMAB
     Dosage: INDIVIDUAL DOSE 668MG
     Route: 042
     Dates: start: 20051025
  28. AVASTIN [Suspect]
     Active Substance: BEVACIZUMAB
     Dosage: INDIVIDUAL DOSE 350MG
     Route: 042
     Dates: start: 20050607
  29. ABRAXANE [Suspect]
     Active Substance: PACLITAXEL
     Route: 042
     Dates: start: 20050407
  30. ABRAXANE [Suspect]
     Active Substance: PACLITAXEL
     Route: 042
     Dates: start: 20050816
  31. ABRAXANE [Suspect]
     Active Substance: PACLITAXEL
     Route: 042
     Dates: start: 20050823
  32. DECADRON [Concomitant]
     Active Substance: DEXAMETHASONE
     Route: 042
     Dates: start: 20050628
  33. ARANESP [Concomitant]
     Active Substance: DARBEPOETIN ALFA
     Route: 042
     Dates: start: 20050830
  34. ARANESP [Concomitant]
     Active Substance: DARBEPOETIN ALFA
     Route: 042
     Dates: start: 20051018
  35. ARANESP [Concomitant]
     Active Substance: DARBEPOETIN ALFA
     Route: 042
     Dates: start: 20051108
  36. ARANESP [Concomitant]
     Active Substance: DARBEPOETIN ALFA
     Route: 042
     Dates: start: 20050607
  37. ZOMETA [Concomitant]
     Active Substance: ZOLEDRONIC ACID
     Route: 042
     Dates: start: 20051025
  38. ZOMETA [Concomitant]
     Active Substance: ZOLEDRONIC ACID
     Route: 042
     Dates: start: 20050705
  39. PRINIVIL [Concomitant]
     Active Substance: LISINOPRIL
     Route: 048
  40. VITAMIN B COMPLEX [Concomitant]
     Active Substance: CYANOCOBALAMIN\DEXPANTHENOL\NIACINAMIDE\PYRIDOXINE HYDROCHLORIDE\RIBOFLAVIN 5^-PHOSPHATE SODIUM\THIAMINE HYDROCHLORIDE\VITAMIN B COMPLEX
  41. ELAVIL [Concomitant]
     Active Substance: AMITRIPTYLINE HYDROCHLORIDE
     Route: 065
  42. AVASTIN [Suspect]
     Active Substance: BEVACIZUMAB
     Dosage: INDIVIDUAL DOSE 668 MG
     Route: 042
     Dates: start: 20051011
  43. AVASTIN [Suspect]
     Active Substance: BEVACIZUMAB
     Route: 042
     Dates: start: 20050830
  44. AVASTIN [Suspect]
     Active Substance: BEVACIZUMAB
     Route: 042
     Dates: start: 20050927
  45. BACTRIM [Suspect]
     Active Substance: SULFAMETHOXAZOLE\TRIMETHOPRIM
     Indication: PRODUCT USED FOR UNKNOWN INDICATION
     Route: 065
  46. NEULASTA [Suspect]
     Active Substance: PEGFILGRASTIM
     Route: 065
     Dates: start: 20050928
  47. ABRAXANE [Suspect]
     Active Substance: PACLITAXEL
     Dosage: INDIVIDUAL DOSE 176 MG
     Route: 042
     Dates: start: 20051011
  48. ALOXI [Concomitant]
     Active Substance: PALONOSETRON HYDROCHLORIDE
     Route: 042
     Dates: start: 20050726
  49. ALOXI [Concomitant]
     Active Substance: PALONOSETRON HYDROCHLORIDE
     Route: 042
     Dates: start: 20050920
  50. ALOXI [Concomitant]
     Active Substance: PALONOSETRON HYDROCHLORIDE
     Route: 042
     Dates: start: 20050927
  51. DECADRON [Concomitant]
     Active Substance: DEXAMETHASONE
     Route: 042
     Dates: start: 20050407
  52. BENADRYL [Concomitant]
     Active Substance: DIPHENHYDRAMINE HYDROCHLORIDE
     Route: 042
     Dates: start: 20050614
  53. BENADRYL [Concomitant]
     Active Substance: DIPHENHYDRAMINE HYDROCHLORIDE
     Route: 042
     Dates: start: 20050802
  54. BENADRYL [Concomitant]
     Active Substance: DIPHENHYDRAMINE HYDROCHLORIDE
     Route: 042
     Dates: start: 20050830
  55. ZOMETA [Concomitant]
     Active Substance: ZOLEDRONIC ACID
     Route: 042
     Dates: start: 20050927
  56. ZOMETA [Concomitant]
     Active Substance: ZOLEDRONIC ACID
     Route: 042
     Dates: start: 20051122
  57. COUMADIN [Concomitant]
     Active Substance: WARFARIN SODIUM
     Route: 048
     Dates: end: 200003
  58. PEPCID [Concomitant]
     Active Substance: FAMOTIDINE
     Route: 065
  59. MARINOL (UNITED STATES) [Concomitant]
     Route: 065
  60. AVASTIN [Suspect]
     Active Substance: BEVACIZUMAB
     Dosage: INDIVIDUAL DOSE 350MG
     Route: 042
     Dates: start: 20050510
  61. AVASTIN [Suspect]
     Active Substance: BEVACIZUMAB
     Route: 042
     Dates: start: 20050913
  62. NEULASTA [Suspect]
     Active Substance: PEGFILGRASTIM
     Indication: PRODUCT USED FOR UNKNOWN INDICATION
     Route: 065
     Dates: start: 20050515
  63. ABRAXANE [Suspect]
     Active Substance: PACLITAXEL
     Indication: PRODUCT USED FOR UNKNOWN INDICATION
     Dosage: INDIVIDUAL DOSE 463 MG
     Route: 042
     Dates: start: 20050426
  64. ABRAXANE [Suspect]
     Active Substance: PACLITAXEL
     Route: 042
     Dates: start: 20050719
  65. ABRAXANE [Suspect]
     Active Substance: PACLITAXEL
     Dosage: INDIVIDUAL DOSE 463MG
     Route: 042
     Dates: start: 20050628
  66. ABRAXANE [Suspect]
     Active Substance: PACLITAXEL
     Route: 042
     Dates: start: 20050802
  67. ALOXI [Concomitant]
     Active Substance: PALONOSETRON HYDROCHLORIDE
     Route: 042
     Dates: start: 20050517
  68. ALOXI [Concomitant]
     Active Substance: PALONOSETRON HYDROCHLORIDE
     Route: 042
     Dates: start: 20050407
  69. ALOXI [Concomitant]
     Active Substance: PALONOSETRON HYDROCHLORIDE
     Route: 042
     Dates: start: 20050802
  70. ALOXI [Concomitant]
     Active Substance: PALONOSETRON HYDROCHLORIDE
     Route: 042
     Dates: start: 20050816
  71. DECADRON [Concomitant]
     Active Substance: DEXAMETHASONE
     Route: 042
     Dates: start: 20050823
  72. BENADRYL [Concomitant]
     Active Substance: DIPHENHYDRAMINE HYDROCHLORIDE
     Route: 042
     Dates: start: 20050524
  73. BENADRYL [Concomitant]
     Active Substance: DIPHENHYDRAMINE HYDROCHLORIDE
     Route: 042
     Dates: start: 20050719
  74. BENADRYL [Concomitant]
     Active Substance: DIPHENHYDRAMINE HYDROCHLORIDE
     Route: 042
     Dates: start: 20050816
  75. BENADRYL [Concomitant]
     Active Substance: DIPHENHYDRAMINE HYDROCHLORIDE
     Route: 042
     Dates: start: 20050913
  76. BENADRYL [Concomitant]
     Active Substance: DIPHENHYDRAMINE HYDROCHLORIDE
     Route: 042
     Dates: start: 20051025
  77. BENADRYL [Concomitant]
     Active Substance: DIPHENHYDRAMINE HYDROCHLORIDE
     Route: 042
     Dates: start: 20050607
  78. BENADRYL [Concomitant]
     Active Substance: DIPHENHYDRAMINE HYDROCHLORIDE
     Route: 042
     Dates: start: 20050621
  79. ARANESP [Concomitant]
     Active Substance: DARBEPOETIN ALFA
     Route: 042
     Dates: start: 20050517
  80. ARANESP [Concomitant]
     Active Substance: DARBEPOETIN ALFA
     Route: 042
     Dates: start: 20050719
  81. ARANESP [Concomitant]
     Active Substance: DARBEPOETIN ALFA
     Route: 042
     Dates: start: 20050705
  82. ZOMETA [Concomitant]
     Active Substance: ZOLEDRONIC ACID
     Route: 042
     Dates: start: 20050607
  83. PROCARDIA XL [Concomitant]
     Active Substance: NIFEDIPINE
     Route: 065
  84. NEULASTA [Suspect]
     Active Substance: PEGFILGRASTIM
     Route: 065
     Dates: start: 20050629
  85. ABRAXANE [Suspect]
     Active Substance: PACLITAXEL
     Route: 042
     Dates: start: 20050913
  86. ALOXI [Concomitant]
     Active Substance: PALONOSETRON HYDROCHLORIDE
     Route: 042
     Dates: start: 20050823
  87. ALOXI [Concomitant]
     Active Substance: PALONOSETRON HYDROCHLORIDE
     Route: 042
     Dates: start: 20051018
  88. DECADRON [Concomitant]
     Active Substance: DEXAMETHASONE
     Route: 042
     Dates: start: 20051108
  89. DECADRON [Concomitant]
     Active Substance: DEXAMETHASONE
     Route: 042
  90. DECADRON [Concomitant]
     Active Substance: DEXAMETHASONE
     Route: 042
     Dates: start: 20050802
  91. DECADRON [Concomitant]
     Active Substance: DEXAMETHASONE
     Route: 042
     Dates: start: 20050816
  92. ZOMETA [Concomitant]
     Active Substance: ZOLEDRONIC ACID
     Route: 042
     Dates: start: 20050407
  93. ZOMETA [Concomitant]
     Active Substance: ZOLEDRONIC ACID
     Route: 042
     Dates: start: 20050802
  94. ZOMETA [Concomitant]
     Active Substance: ZOLEDRONIC ACID
     Route: 042
     Dates: start: 20050830
  95. AVASTIN [Suspect]
     Active Substance: BEVACIZUMAB
     Dosage: INDIVIDUAL DOSE 350MG
     Route: 042
     Dates: start: 20050621
  96. ALOXI [Concomitant]
     Active Substance: PALONOSETRON HYDROCHLORIDE
     Route: 042
     Dates: start: 20050719
  97. ALOXI [Concomitant]
     Active Substance: PALONOSETRON HYDROCHLORIDE
     Route: 042
     Dates: start: 20051011
  98. BENADRYL [Concomitant]
     Active Substance: DIPHENHYDRAMINE HYDROCHLORIDE
     Route: 042
     Dates: start: 20050510
  99. ARANESP [Concomitant]
     Active Substance: DARBEPOETIN ALFA
     Route: 042
     Dates: start: 20050621
  100. ARANESP [Concomitant]
     Active Substance: DARBEPOETIN ALFA
     Route: 042
     Dates: start: 20051004
  101. FLU SHOT [Concomitant]
     Active Substance: INFLUENZA VIRUS VACCINE
     Route: 065
     Dates: start: 20051025
  102. GLUTAMINE [Concomitant]
     Active Substance: GLUTAMINE
  103. AVASTIN [Suspect]
     Active Substance: BEVACIZUMAB
     Dosage: INDIVIDUAL DOSE 700MG
     Route: 042
     Dates: start: 20050705
  104. AVASTIN [Suspect]
     Active Substance: BEVACIZUMAB
     Dosage: INDIVIDUAL DOSE 668MG
     Route: 042
     Dates: start: 20051108
  105. ABRAXANE [Suspect]
     Active Substance: PACLITAXEL
     Dosage: INDIVIDUAL DOSE 463MG
     Route: 042
     Dates: start: 20050517
  106. ABRAXANE [Suspect]
     Active Substance: PACLITAXEL
     Route: 042
     Dates: start: 20050726
  107. ABRAXANE [Suspect]
     Active Substance: PACLITAXEL
     Dosage: INDIVIDUAL DOSE 463 MG
     Route: 042
     Dates: start: 20050607
  108. ABRAXANE [Suspect]
     Active Substance: PACLITAXEL
     Dosage: INDIVIDUAL DOSE 463MG
     Route: 042
     Dates: start: 20050424
  109. ALOXI [Concomitant]
     Active Substance: PALONOSETRON HYDROCHLORIDE
     Route: 042
     Dates: start: 20050628
  110. ALOXI [Concomitant]
     Active Substance: PALONOSETRON HYDROCHLORIDE
     Route: 042
     Dates: start: 20051108
  111. ALOXI [Concomitant]
     Active Substance: PALONOSETRON HYDROCHLORIDE
     Route: 042
     Dates: start: 20050607
  112. BENADRYL [Concomitant]
     Active Substance: DIPHENHYDRAMINE HYDROCHLORIDE
     Route: 042
     Dates: start: 20050705
  113. KYTRIL [Concomitant]
     Active Substance: GRANISETRON HYDROCHLORIDE
     Route: 042
  114. VITAMIN E [Concomitant]
     Active Substance: .ALPHA.-TOCOPHEROL

REACTIONS (16)
  - Muscular weakness [Unknown]
  - Alopecia [Unknown]
  - Death [Fatal]
  - Bone lesion [Unknown]
  - Dizziness [Unknown]
  - Nail disorder [Unknown]
  - Back pain [Unknown]
  - Hepatic lesion [Unknown]
  - Bone pain [Unknown]
  - Malaise [Unknown]
  - Hypotension [Unknown]
  - Hypophagia [Unknown]
  - Rash [Unknown]
  - Musculoskeletal pain [Unknown]
  - Off label use [Unknown]
  - Fatigue [Unknown]
